FAERS Safety Report 9285953 (Version 1)
Quarter: 2013Q2

REPORT INFORMATION
  Report Type: Spontaneous
  Country: US (occurrence: None)
  Receive Date: 20130510
  Receipt Date: 20130510
  Transmission Date: 20140414
  Serious: No
  Sender: FDA-Public Use
  Company Number: None

PATIENT
  Age: 56 Year
  Sex: Female
  Weight: 86.18 kg

DRUGS (2)
  1. CELEXA [Suspect]
     Indication: ANXIETY
     Dates: start: 201303, end: 201304
  2. SAPHRIS [Suspect]
     Indication: ANXIETY
     Route: 060

REACTIONS (3)
  - Agitation [None]
  - Aggression [None]
  - Anxiety [None]
